FAERS Safety Report 4526597-9 (Version None)
Quarter: 2004Q4

REPORT INFORMATION
  Report Type: 
  Country: None (occurrence: None)
  Receive Date: 20041213
  Receipt Date: 20041129
  Transmission Date: 20050328
  Serious: Yes (Hospitalization)
  Sender: FDA-Public Use
  Company Number: HQWYE749503DEC04

PATIENT
  Age: 68 Year
  Sex: Female

DRUGS (2)
  1. EFFEXOR [Suspect]
     Indication: BIPOLAR I DISORDER
     Dosage: 300 MG 1X PER 1 DAY
     Dates: end: 20010301
  2. VALPROMIDE [Suspect]
     Indication: BIPOLAR DISORDER
     Dosage: 1200 MG 1X PER 1 DAY
     Dates: start: 20000101, end: 20010101

REACTIONS (11)
  - ANHEDONIA [None]
  - ANTICONVULSANT DRUG LEVEL DECREASED [None]
  - ANXIETY [None]
  - DEPRESSED MOOD [None]
  - DISTURBANCE IN ATTENTION [None]
  - DRUG INEFFECTIVE [None]
  - HYPERSOMNIA [None]
  - INITIAL INSOMNIA [None]
  - MAJOR DEPRESSION [None]
  - MENTAL IMPAIRMENT [None]
  - SLEEP DISORDER [None]
